FAERS Safety Report 24401654 (Version 1)
Quarter: 2024Q4

REPORT INFORMATION
  Report Type: Spontaneous
  Country: US (occurrence: US)
  Receive Date: 20241007
  Receipt Date: 20241007
  Transmission Date: 20250115
  Serious: Yes (Other)
  Sender: AUROBINDO
  Company Number: US-AUROBINDO-AUR-APL-2024-021299

PATIENT
  Age: 16 Year
  Sex: Male
  Weight: 77.11 kg

DRUGS (3)
  1. CLINDAMYCIN HYDROCHLORIDE [Suspect]
     Active Substance: CLINDAMYCIN HYDROCHLORIDE
     Indication: Rash
     Dosage: UNK (TOOK 02 PILLS ON THAT DAY)
     Route: 065
     Dates: start: 20240405
  2. CLINDAMYCIN HYDROCHLORIDE [Suspect]
     Active Substance: CLINDAMYCIN HYDROCHLORIDE
     Indication: Infection
     Dosage: UNK (03 PILLS ON SATURDAY)
     Route: 065
     Dates: start: 20240406
  3. CLINDAMYCIN HYDROCHLORIDE [Suspect]
     Active Substance: CLINDAMYCIN HYDROCHLORIDE
     Dosage: UNK (01 PILL ON SUNDAY)
     Route: 065
     Dates: start: 20240407, end: 20240407

REACTIONS (2)
  - Renal impairment [Unknown]
  - Rash [Unknown]
